FAERS Safety Report 7794784-2 (Version None)
Quarter: 2011Q4

REPORT INFORMATION
  Report Type: 
  Country: None (occurrence: None)
  Receive Date: 20111004
  Receipt Date: 20110928
  Transmission Date: 20120403
  Serious: No
  Sender: FDA-Public Use
  Company Number: US-PFIZER INC-2011151101

PATIENT
  Sex: Male

DRUGS (5)
  1. CLONOPIN [Concomitant]
     Route: 064
  2. LITHIUM [Concomitant]
     Route: 064
  3. ZOLOFT [Suspect]
     Dosage: AT NIGHT
     Route: 064
  4. TEGRETOL [Concomitant]
     Route: 064
  5. TYLENOL-500 [Concomitant]

REACTIONS (1)
  - MATERNAL EXPOSURE DURING PREGNANCY [None]
